FAERS Safety Report 17384757 (Version 1)
Quarter: 2020Q1

REPORT INFORMATION
  Report Type: Spontaneous
  Country: US (occurrence: US)
  Receive Date: 20200206
  Receipt Date: 20200206
  Transmission Date: 20200409
  Serious: No
  Sender: FDA-Public Use
  Company Number: US-EPIC PHARMA LLC-2019EPC00345

PATIENT
  Sex: Female
  Weight: 16.78 kg

DRUGS (10)
  1. UNKNOWN MEDICATION FOR ACID REFLUX?STOMACH UPSET [Concomitant]
     Indication: ABDOMINAL DISCOMFORT
  2. RANITIDINE. [Concomitant]
     Active Substance: RANITIDINE
     Indication: GASTROOESOPHAGEAL REFLUX DISEASE
     Dosage: UNK, 1X/DAY
  3. ACETAMINOPHEN. [Concomitant]
     Active Substance: ACETAMINOPHEN
     Dosage: CYCLED WITH IBUPROFEN EVERY 3 HOURS AS NEEDED
  4. ALBUTEROL INHALER (NON COMPANY PRODUCT) [Concomitant]
  5. UNKNOWN MEDICATION FOR ACID REFLUX?STOMACH UPSET [Concomitant]
     Indication: GASTROOESOPHAGEAL REFLUX DISEASE
  6. AZITHROMYCIN ANHYDROUS. [Suspect]
     Active Substance: AZITHROMYCIN ANHYDROUS
     Indication: PRIMARY CILIARY DYSKINESIA
     Dosage: 4 ML, 3X/WEEK (M, W, F) AT NIGHT
     Route: 048
     Dates: start: 20190820
  7. IBUPROFEN. [Concomitant]
     Active Substance: IBUPROFEN
     Dosage: CYCLED WITH ACETAMINOPHEN EVERY 3 HOURS AS NEEDED
  8. SODIUM CHLORIDE 3% NEBULIZER SOLUTION [Concomitant]
     Dosage: UNK, 2X/DAY
  9. ADVAIR HFA [Concomitant]
     Active Substance: FLUTICASONE PROPIONATE\SALMETEROL XINAFOATE
  10. ALBUTEROL NEBULIZER SOLUTION [Concomitant]
     Active Substance: ALBUTEROL
     Dosage: EVERY 4 HOURS AS NEEDED

REACTIONS (5)
  - Product dispensing error [Recovered/Resolved]
  - Pyrexia [Recovered/Resolved]
  - Abdominal discomfort [Not Recovered/Not Resolved]
  - Expired product administered [Recovered/Resolved]
  - Drug ineffective [Recovering/Resolving]
